FAERS Safety Report 7313380-4 (Version None)
Quarter: 2011Q1

REPORT INFORMATION
  Report Type: 
  Country: None (occurrence: None)
  Receive Date: 20110225
  Receipt Date: 20110222
  Transmission Date: 20110831
  Serious: No
  Sender: FDA-Public Use
  Company Number: US-PFIZER INC-2011039228

PATIENT
  Sex: Female

DRUGS (1)
  1. PROCARDIA XL [Suspect]
     Indication: BLOOD PRESSURE ABNORMAL
     Dosage: 90 MG, 1X/DAY
     Route: 048

REACTIONS (1)
  - RESPIRATORY TRACT CONGESTION [None]
